FAERS Safety Report 23551971 (Version 4)
Quarter: 2025Q1

REPORT INFORMATION
  Report Type: Report from Study
  Country: SA (occurrence: SA)
  Receive Date: 20240222
  Receipt Date: 20250120
  Transmission Date: 20250409
  Serious: Yes (Other)
  Sender: GLAXOSMITHKLINE
  Company Number: SA-GLAXOSMITHKLINE-SA2023EME170561

PATIENT

DRUGS (1)
  1. BELIMUMAB [Suspect]
     Active Substance: BELIMUMAB
     Indication: Systemic lupus erythematosus
     Dosage: 200 MG, WE
     Dates: start: 20231128, end: 20240714

REACTIONS (22)
  - Pneumonia [Unknown]
  - Immobile [Unknown]
  - Decreased immune responsiveness [Unknown]
  - Headache [Not Recovered/Not Resolved]
  - Influenza [Not Recovered/Not Resolved]
  - Bronchitis [Recovered/Resolved]
  - Lethargy [Unknown]
  - Tumour pain [Unknown]
  - Nausea [Unknown]
  - Arthralgia [Unknown]
  - Pain in extremity [Unknown]
  - Mobility decreased [Unknown]
  - Dizziness [Unknown]
  - Peripheral swelling [Unknown]
  - Dry mouth [Unknown]
  - Speech disorder [Unknown]
  - Muscle spasms [Unknown]
  - Mood altered [Unknown]
  - COVID-19 [Unknown]
  - Tension [Unknown]
  - Nervousness [Unknown]
  - Asthma [Unknown]

NARRATIVE: CASE EVENT DATE: 20231128
